FAERS Safety Report 11069682 (Version 1)
Quarter: 2015Q2

REPORT INFORMATION
  Report Type: Report from Study
  Country: FR (occurrence: FR)
  Receive Date: 20150427
  Receipt Date: 20150427
  Transmission Date: 20150821
  Serious: Yes (Death, Other)
  Sender: FDA-Public Use
  Company Number: FR-MYLANLABS-2015M1013923

PATIENT

DRUGS (4)
  1. OXAZEPAM. [Concomitant]
     Active Substance: OXAZEPAM
     Route: 065
  2. CYAMEMAZINE [Concomitant]
     Active Substance: CYAMEMAZINE
     Route: 065
  3. BUPRENORPHINE [Suspect]
     Active Substance: BUPRENORPHINE
     Route: 065
  4. LYRICA [Concomitant]
     Active Substance: PREGABALIN
     Route: 065

REACTIONS (2)
  - Intentional overdose [Fatal]
  - Completed suicide [Fatal]
